FAERS Safety Report 23124804 (Version 1)
Quarter: 2023Q4

REPORT INFORMATION
  Report Type: Spontaneous
  Country: US (occurrence: US)
  Receive Date: 20231030
  Receipt Date: 20231030
  Transmission Date: 20240110
  Serious: No
  Sender: FDA-Public Use
  Company Number: US-BRISTOL-MYERS SQUIBB COMPANY-2023-153649

PATIENT
  Age: 58 Year
  Sex: Female

DRUGS (1)
  1. REVLIMID [Suspect]
     Active Substance: LENALIDOMIDE
     Indication: Plasma cell myeloma
     Dosage: QD FOR 14D ON, 7D OFF
     Route: 048

REACTIONS (5)
  - Arthralgia [Unknown]
  - Hypoaesthesia [Unknown]
  - Peripheral swelling [Unknown]
  - Product dose omission issue [Unknown]
  - Off label use [Unknown]
